FAERS Safety Report 6235926 (Version 2)
Quarter: 2013Q1

REPORT INFORMATION
  Report Type: Spontaneous
  Country: GB (occurrence: GB)
  Receive Date: 20070211
  Receipt Date: 20130228
  Transmission Date: 20140127
  Serious: Yes (Other)
  Sender: FDA-Public Use
  Company Number: GB-RB-005080-07

PATIENT
  Age: 24 Hour
  Sex: 0

DRUGS (4)
  1. SUBUTEX [Suspect]
     Dosage: DOSAGE UNKNOWN
     Route: 064
  2. SUBUTEX [Suspect]
     Route: 064
  3. SUBUTEX [Suspect]
     Route: 064
  4. SUBUTEX [Suspect]
     Indication: PRODUCT USED FOR UNKNOWN INDICATION
     Route: 064

REACTIONS (2)
  - Foetal exposure during pregnancy [Recovered/Resolved]
  - Respiratory disorder [Unknown]
